FAERS Safety Report 24667313 (Version 1)
Quarter: 2024Q4

REPORT INFORMATION
  Report Type: Spontaneous
  Country: ES (occurrence: ES)
  Receive Date: 20241126
  Receipt Date: 20241126
  Transmission Date: 20250114
  Serious: Yes (Death)
  Sender: EISAI
  Company Number: ES-Eisai-EC-2024-179606

PATIENT
  Age: 67 Year
  Sex: Male

DRUGS (1)
  1. LENVATINIB [Suspect]
     Active Substance: LENVATINIB
     Indication: Hepatic cancer
     Dosage: DOSE AND FREQUENCY WERE UNKNOWN.
     Route: 048

REACTIONS (2)
  - Pneumoperitoneum [Fatal]
  - Pneumatosis intestinalis [Fatal]
